FAERS Safety Report 16725038 (Version 1)
Quarter: 2019Q3

REPORT INFORMATION
  Report Type: Spontaneous
  Country: US (occurrence: US)
  Receive Date: 20190821
  Receipt Date: 20190821
  Transmission Date: 20191005
  Serious: Yes (Other)
  Sender: FDA-Public Use
  Company Number: US-MYLANLABS-2019M1077950

PATIENT
  Age: 37 Year
  Sex: Male

DRUGS (6)
  1. EFALIZUMAB [Suspect]
     Active Substance: EFALIZUMAB
     Indication: DYSHIDROTIC ECZEMA
     Dosage: AT STANDARD ANTIPSORIASIS DOSE
     Route: 065
  2. APREMILAST [Suspect]
     Active Substance: APREMILAST
     Indication: DYSHIDROTIC ECZEMA
     Dosage: AT STANDARD ANTIPSORIASIS DOSE
     Route: 065
  3. METHOTREXATE. [Suspect]
     Active Substance: METHOTREXATE
     Indication: DYSHIDROTIC ECZEMA
     Dosage: UNK
     Route: 065
  4. ADALIMUMAB [Suspect]
     Active Substance: ADALIMUMAB
     Indication: DYSHIDROTIC ECZEMA
     Dosage: AT STANDARD ANTIPSORIASIS DOSE
     Route: 065
  5. IXEKIZUMAB [Suspect]
     Active Substance: IXEKIZUMAB
     Indication: DYSHIDROTIC ECZEMA
     Dosage: AT STANDARD ANTIPSORIASIS DOSE
     Route: 065
  6. ETANERCEPT [Suspect]
     Active Substance: ETANERCEPT
     Indication: DYSHIDROTIC ECZEMA
     Dosage: AT STANDARD ANTIPSORIASIS DOSE
     Route: 065

REACTIONS (1)
  - Therapy non-responder [Unknown]
